FAERS Safety Report 10394116 (Version 2)
Quarter: 2014Q4

REPORT INFORMATION
  Report Type: Spontaneous
  Country: JP (occurrence: JP)
  Receive Date: 20140819
  Receipt Date: 20141112
  Transmission Date: 20150528
  Serious: Yes (Other)
  Sender: FDA-Public Use
  Company Number: PHHY2008JP045267

PATIENT
  Age: 61 Year
  Sex: Female

DRUGS (2)
  1. ZOMETA [Suspect]
     Active Substance: ZOLEDRONIC ACID
     Indication: METASTASES TO BONE
     Dosage: 4 MG PER 4 WEEKS
     Route: 042
     Dates: start: 200705, end: 200801
  2. AREDIA [Suspect]
     Active Substance: PAMIDRONATE DISODIUM
     Indication: METASTASES TO BONE
     Dosage: 90 MG, QD
     Route: 042
     Dates: start: 200603, end: 2007

REACTIONS (5)
  - Tooth disorder [Recovering/Resolving]
  - Osteonecrosis of jaw [Recovered/Resolved]
  - Swelling [Recovered/Resolved]
  - Primary sequestrum [Unknown]
  - Pain [Recovered/Resolved]

NARRATIVE: CASE EVENT DATE: 200803
